FAERS Safety Report 9234942 (Version 2)
Quarter: 2013Q2

REPORT INFORMATION
  Report Type: Spontaneous
  Country: US (occurrence: US)
  Receive Date: 20130416
  Receipt Date: 20130419
  Transmission Date: 20140414
  Serious: No
  Sender: FDA-Public Use
  Company Number: US-009507513-1304USA006796

PATIENT
  Age: 14 Year
  Sex: Female

DRUGS (7)
  1. SAPHRIS [Suspect]
     Indication: PSYCHOTIC DISORDER
     Dosage: UNK
     Route: 060
     Dates: start: 201212
  2. HALDOL [Suspect]
     Dosage: UNK
     Dates: start: 201212
  3. HALDOL [Suspect]
     Dosage: 5 MG, UNK
  4. ABILIFY [Concomitant]
     Dosage: 30 MG, UNK
     Dates: start: 201212
  5. TOPAMAX [Concomitant]
     Indication: CONVULSION
     Dosage: UNK
  6. LAMICTAL [Concomitant]
     Indication: CONVULSION
     Dosage: UNK
  7. SYMMETREL [Concomitant]
     Dosage: UNK, LOW DOSE

REACTIONS (4)
  - Restlessness [Recovering/Resolving]
  - Dyskinesia [Recovering/Resolving]
  - Weight decreased [Unknown]
  - Therapeutic response unexpected [Unknown]
